FAERS Safety Report 22762603 (Version 3)
Quarter: 2023Q4

REPORT INFORMATION
  Report Type: Report from Study
  Country: MY (occurrence: MY)
  Receive Date: 20230728
  Receipt Date: 20231011
  Transmission Date: 20240110
  Serious: Yes (Hospitalization)
  Sender: FDA-Public Use
  Company Number: MY-JNJFOC-20230744403

PATIENT
  Age: 67 Year
  Sex: Female
  Weight: 74 kg

DRUGS (25)
  1. AMIVANTAMAB [Suspect]
     Active Substance: AMIVANTAMAB
     Indication: Non-small cell lung cancer
     Dosage: MOST RECENT DOSE ON 06-JUL-2023
     Route: 058
     Dates: start: 20230608
  2. CELEBREX [Concomitant]
     Active Substance: CELECOXIB
     Indication: Musculoskeletal chest pain
     Route: 048
     Dates: start: 20230705, end: 20230902
  3. CELEBREX [Concomitant]
     Active Substance: CELECOXIB
     Indication: Musculoskeletal chest pain
     Route: 048
     Dates: start: 20230504, end: 20230704
  4. GABAPENTIN [Concomitant]
     Active Substance: GABAPENTIN
     Indication: Musculoskeletal chest pain
     Route: 048
     Dates: start: 20230705
  5. GABAPENTIN [Concomitant]
     Active Substance: GABAPENTIN
     Indication: Musculoskeletal chest pain
     Route: 048
     Dates: start: 20230504, end: 20230704
  6. ACETAMINOPHEN [Concomitant]
     Active Substance: ACETAMINOPHEN
     Indication: Musculoskeletal chest pain
     Route: 048
     Dates: start: 20230705, end: 20230902
  7. ACETAMINOPHEN [Concomitant]
     Active Substance: ACETAMINOPHEN
     Indication: Musculoskeletal chest pain
     Route: 048
     Dates: start: 20230504, end: 20230704
  8. HYALURONIC ACID [Concomitant]
     Active Substance: HYALURONIC ACID
     Indication: Mouth ulceration
     Route: 048
     Dates: start: 20230621, end: 20230707
  9. HYALURONIC ACID [Concomitant]
     Active Substance: HYALURONIC ACID
     Indication: Mouth ulceration
  10. CERAMIDE [Concomitant]
     Indication: Skin fissures
     Dosage: 1 DOSAGE; UNIT NOT PROVIDED
     Route: 061
     Dates: start: 20230706, end: 20230902
  11. CERAMIDE [Concomitant]
     Indication: Dry skin
  12. HYDROCORTISONE [Concomitant]
     Active Substance: HYDROCORTISONE
     Indication: Paronychia
     Dosage: 1 DOSAGE; UNIT NOT PROVIDED
     Route: 061
     Dates: start: 20230706, end: 20230902
  13. HYDROCORTISONE [Concomitant]
     Active Substance: HYDROCORTISONE
     Indication: Paronychia
  14. HYDROCORTISONE [Concomitant]
     Active Substance: HYDROCORTISONE
     Indication: Dermatitis acneiform
  15. HERBALS [Concomitant]
     Active Substance: HERBALS
     Indication: Cough
     Route: 048
     Dates: start: 20230706, end: 20230725
  16. MUPIROCIN [Concomitant]
     Active Substance: MUPIROCIN
     Indication: Paronychia
     Dosage: 1 DOSAGE; NO UNIT PROVIDED
     Route: 061
     Dates: start: 20230706, end: 20230902
  17. MUPIROCIN [Concomitant]
     Active Substance: MUPIROCIN
     Indication: Paronychia
  18. MUPIROCIN [Concomitant]
     Active Substance: MUPIROCIN
     Indication: Skin fissures
  19. MUPIROCIN [Concomitant]
     Active Substance: MUPIROCIN
     Indication: Dry skin
  20. POVIDONE-IODINE [Concomitant]
     Active Substance: POVIDONE-IODINE
     Indication: Paronychia
     Dosage: 1 DOSAGE; NO UNIT PROVIDED
     Route: 061
     Dates: start: 20230706, end: 20230902
  21. POVIDONE-IODINE [Concomitant]
     Active Substance: POVIDONE-IODINE
     Indication: Paronychia
  22. POVIDONE-IODINE [Concomitant]
     Active Substance: POVIDONE-IODINE
     Indication: Dry skin
  23. POVIDONE-IODINE [Concomitant]
     Active Substance: POVIDONE-IODINE
     Indication: Skin fissures
  24. VITAMIN B COMPLEX [Concomitant]
     Active Substance: CYANOCOBALAMIN\DEXPANTHENOL\NIACINAMIDE\PYRIDOXINE HYDROCHLORIDE\RIBOFLAVIN 5^-PHOSPHATE SODIUM\THIA
     Indication: Muscle spasms
     Route: 048
     Dates: start: 20230706, end: 20230801
  25. TRAMADOL [Concomitant]
     Active Substance: TRAMADOL\TRAMADOL HYDROCHLORIDE
     Indication: Musculoskeletal chest pain
     Route: 048
     Dates: start: 20230504, end: 20230704

REACTIONS (1)
  - Dyspnoea [Recovering/Resolving]

NARRATIVE: CASE EVENT DATE: 20230713
